FAERS Safety Report 5102842-6 (Version None)
Quarter: 2006Q3

REPORT INFORMATION
  Report Type: 
  Country: None (occurrence: None)
  Receive Date: 20060912
  Receipt Date: 20060817
  Transmission Date: 20061208
  Serious: Yes (Other)
  Sender: FDA-Public Use
  Company Number: US-SANOFI-SYNTHELABO-A03200605216

PATIENT
  Sex: Female

DRUGS (3)
  1. AMBIEN [Suspect]
     Indication: INSOMNIA
     Route: 048
     Dates: start: 20060101, end: 20060810
  2. CELEXA [Concomitant]
     Dosage: UNK
     Route: 048
  3. LEVBID [Concomitant]
     Dosage: UNK
     Route: 048

REACTIONS (2)
  - FOOT FRACTURE [None]
  - SLEEP WALKING [None]
